FAERS Safety Report 11124090 (Version 3)
Quarter: 2016Q4

REPORT INFORMATION
  Report Type: Report from Study
  Country: US (occurrence: US)
  Receive Date: 20150520
  Receipt Date: 20161216
  Transmission Date: 20170206
  Serious: Yes (Other)
  Sender: FDA-Public Use
  Company Number: US-ROCHE-1578952

PATIENT

DRUGS (2)
  1. IPILIMUMAB [Suspect]
     Active Substance: IPILIMUMAB
     Indication: METASTATIC MALIGNANT MELANOMA
     Dosage: Q3W X FOUR DOSES THEN Q12W BEGINING AT WEEK 24 UNTIL DISEASE PROGRESSION OR UNACCEPTABLE TOXICITY
     Route: 065
  2. VEMURAFENIB [Suspect]
     Active Substance: VEMURAFENIB
     Indication: METASTATIC MALIGNANT MELANOMA
     Dosage: FOR 6 WEEKS
     Route: 065

REACTIONS (16)
  - Nausea [Unknown]
  - Colitis [Unknown]
  - Squamous cell carcinoma [Unknown]
  - Exfoliative rash [Unknown]
  - Alanine aminotransferase increased [Unknown]
  - Diarrhoea [Unknown]
  - Hepatitis [Unknown]
  - Autoimmune colitis [Unknown]
  - Aspartate aminotransferase increased [Unknown]
  - Abdominal pain [Unknown]
  - Hyperbilirubinaemia [Unknown]
  - Rash maculo-papular [Unknown]
  - Erythema [Unknown]
  - Rash [Unknown]
  - Pruritus [Unknown]
  - Vomiting [Unknown]
